FAERS Safety Report 5724655-4 (Version None)
Quarter: 2008Q2

REPORT INFORMATION
  Report Type: 
  Country: None (occurrence: None)
  Receive Date: 20080428
  Receipt Date: 20080411
  Transmission Date: 20081010
  Serious: Yes (Other)
  Sender: FDA-Public Use
  Company Number: DSA_31615_2008

PATIENT
  Sex: Male

DRUGS (8)
  1. HERBESSER (HERBESSER (TANABE) - DILTIAZEM HYDROCHLORIDE) (NOT SPECIFIE [Suspect]
     Indication: HYPERTENSION
     Dosage: (1350 MG QD INTRAVENOUS DRIP)
     Route: 041
     Dates: start: 20080210, end: 20080214
  2. MANNITOL [Concomitant]
  3. UNASYN [Concomitant]
  4. RADICUT [Concomitant]
  5. LACTEC [Concomitant]
  6. AMINO [Concomitant]
  7. PANTOL [Concomitant]
  8. SODIUM CHLORIDE [Concomitant]

REACTIONS (1)
  - ILEUS PARALYTIC [None]
